FAERS Safety Report 9314110 (Version 1)
Quarter: 2013Q2

REPORT INFORMATION
  Report Type: Spontaneous
  Country: JP (occurrence: JP)
  Receive Date: 20130529
  Receipt Date: 20130529
  Transmission Date: 20140414
  Serious: Yes (Death)
  Sender: FDA-Public Use
  Company Number: JP-NOVOPROD-377632

PATIENT
  Age: 69 Year
  Sex: Male
  Weight: 64 kg

DRUGS (1)
  1. NOVOSEVEN HI [Suspect]
     Indication: PROCEDURAL HAEMORRHAGE
     Dosage: 2 MG, QD
     Route: 042
     Dates: start: 20130319, end: 20130319

REACTIONS (1)
  - Low cardiac output syndrome [Fatal]
